FAERS Safety Report 4436073-X (Version None)
Quarter: 2004Q3

REPORT INFORMATION
  Report Type: 
  Country: None (occurrence: None)
  Receive Date: 20040826
  Receipt Date: 20040820
  Transmission Date: 20050211
  Serious: Yes (Death)
  Sender: FDA-Public Use
  Company Number: 200412511GDS

PATIENT
  Age: 21 Year
  Sex: Male

DRUGS (1)
  1. NIFEDIPINE [Suspect]
     Dosage: INTRAVENOUS
     Route: 042

REACTIONS (2)
  - DRUG TOXICITY [None]
  - OVERDOSE [None]
